FAERS Safety Report 6700564-9 (Version None)
Quarter: 2010Q3

REPORT INFORMATION
  Report Type: 
  Country: None (occurrence: None)
  Receive Date: 20100428
  Receipt Date: 20100423
  Transmission Date: 20110219
  Serious: Yes (Hospitalization)
  Sender: FDA-Public Use
  Company Number: B0649192A

PATIENT
  Sex: Female

DRUGS (5)
  1. AMOXICILLIN TRIHYDRATE [Suspect]
     Indication: CYSTITIS
     Dosage: 1G TWICE PER DAY
     Route: 048
     Dates: start: 20100326, end: 20100331
  2. MONUROL [Suspect]
     Indication: CYSTITIS
     Dosage: 1UNIT SINGLE DOSE
     Route: 048
     Dates: start: 20100315, end: 20100315
  3. ENBREL [Concomitant]
     Indication: RHEUMATOID ARTHRITIS
     Route: 065
  4. FOSAVANCE [Concomitant]
     Indication: RHEUMATOID ARTHRITIS
     Route: 065
  5. CACIT D3 [Concomitant]
     Indication: RHEUMATOID ARTHRITIS
     Route: 065

REACTIONS (8)
  - ANGIOEDEMA [None]
  - DRUG RASH WITH EOSINOPHILIA AND SYSTEMIC SYMPTOMS [None]
  - GENERAL PHYSICAL HEALTH DETERIORATION [None]
  - LYMPHADENOPATHY [None]
  - PURPURA [None]
  - PYREXIA [None]
  - RASH [None]
  - TRANSAMINASES INCREASED [None]
